FAERS Safety Report 22056890 (Version 2)
Quarter: 2023Q1

REPORT INFORMATION
  Report Type: Spontaneous
  Country: GB (occurrence: GB)
  Receive Date: 20230303
  Receipt Date: 20230321
  Transmission Date: 20230418
  Serious: Yes (Death, Other)
  Sender: FDA-Public Use
  Company Number: XI-LDELTA-NLLD0037130

PATIENT
  Age: 59 Year
  Sex: Male

DRUGS (22)
  1. OBINUTUZUMAB [Suspect]
     Active Substance: OBINUTUZUMAB
     Indication: Product used for unknown indication
     Route: 065
  2. CLOZAPINE [Suspect]
     Active Substance: CLOZAPINE
     Indication: Product used for unknown indication
     Route: 065
     Dates: start: 20090626, end: 20230207
  3. CALCIUM CARBONATE\CHOLECALCIFEROL [Concomitant]
     Active Substance: CALCIUM CARBONATE\CHOLECALCIFEROL
  4. ACETAMINOPHEN [Concomitant]
     Active Substance: ACETAMINOPHEN
     Indication: Back pain
     Dosage: MAX 8 TABLETS IN 24 HOURS
  5. LACTULOSE [Concomitant]
     Active Substance: LACTULOSE
     Indication: Laxative supportive care
  6. MORPHINE SULFATE [Concomitant]
     Active Substance: MORPHINE SULFATE
     Dosage: 2.5MG TO BE TAKEN 2 TO 4 HOURLY WHEN REQUIRED
  7. MORPHINE SULFATE [Concomitant]
     Active Substance: MORPHINE SULFATE
  8. SENNA [Concomitant]
     Active Substance: SENNA LEAF\SENNOSIDES\SENNOSIDES A AND B
     Indication: Constipation
  9. POLYETHYLENE GLYCOLS [Concomitant]
     Active Substance: POLYETHYLENE GLYCOLS
  10. DEXAMETHASONE [Concomitant]
     Active Substance: DEXAMETHASONE
  11. LANSOPRAZOLE [Concomitant]
     Active Substance: LANSOPRAZOLE
     Indication: Dyspepsia
  12. FYBOGEL [Concomitant]
     Active Substance: HERBALS\PLANTAGO OVATA SEED
  13. LIDOCAINE [Concomitant]
     Active Substance: LIDOCAINE
     Dosage: 5% MEDICATED PLASTERS - 2 PATCHED MANE FOR UP TO 12 HOURS
  14. FLUCONAZOLE [Concomitant]
     Active Substance: FLUCONAZOLE
  15. ONDANSETRON [Concomitant]
     Active Substance: ONDANSETRON
     Dosage: WHEN REQUIRED
  16. BIOTENE GUM [Concomitant]
     Indication: Dry mouth
     Dosage: APPLY TO GUMS AND TONGUE AS REQUIRED
  17. RISEDRONATE SODIUM [Concomitant]
     Active Substance: RISEDRONATE SODIUM
     Indication: Osteoporosis
  18. NYSTATIN [Concomitant]
     Active Substance: NYSTATIN
  19. ACYCLOVIR [Concomitant]
     Active Substance: ACYCLOVIR
  20. DOCUSATE [Concomitant]
     Active Substance: DOCUSATE
  21. COTRIMOXAZOLE [Concomitant]
     Active Substance: SULFAMETHOXAZOLE\TRIMETHOPRIM
     Dosage: 80MG/400MG, TAKE 1 TABLET TWICE DAILY ON MONDAY, WEDNESDAY AND FRIDAY
  22. ARIPIPRAZOLE [Concomitant]
     Active Substance: ARIPIPRAZOLE

REACTIONS (6)
  - Off label use [Unknown]
  - High-grade B-cell lymphoma [Fatal]
  - Contraindicated product administered [Unknown]
  - Acute kidney injury [Fatal]
  - Follicular lymphoma stage IV [Fatal]
  - Thrombocytopenia [Not Recovered/Not Resolved]

NARRATIVE: CASE EVENT DATE: 20210901
